FAERS Safety Report 18291792 (Version 1)
Quarter: 2020Q3

REPORT INFORMATION
  Report Type: Spontaneous
  Country: US (occurrence: US)
  Receive Date: 20200922
  Receipt Date: 20200922
  Transmission Date: 20201103
  Serious: Yes (Hospitalization)
  Sender: FDA-Public Use
  Company Number: US-SA-2018SA017870

PATIENT

DRUGS (10)
  1. TOUJEO [Concomitant]
     Active Substance: INSULIN GLARGINE
  2. PROPRANOLOL [Concomitant]
     Active Substance: PROPRANOLOL HYDROCHLORIDE
  3. TROKENDI [Concomitant]
     Active Substance: TOPIRAMATE
  4. CITALOPRAM [Concomitant]
     Active Substance: CITALOPRAM HYDROBROMIDE
  5. LOSARTAN. [Concomitant]
     Active Substance: LOSARTAN
  6. GLIPIZIDE. [Concomitant]
     Active Substance: GLIPIZIDE
  7. CHLORPROMAZINE. [Concomitant]
     Active Substance: CHLORPROMAZINE
  8. LORAZEPAM. [Concomitant]
     Active Substance: LORAZEPAM
  9. FABRAZYME [Suspect]
     Active Substance: AGALSIDASE BETA
     Indication: FABRY^S DISEASE
     Dosage: 105 MG,QOW
     Route: 041
     Dates: start: 20161007
  10. ZYRTEC [Concomitant]
     Active Substance: CETIRIZINE HYDROCHLORIDE

REACTIONS (2)
  - Hospitalisation [Unknown]
  - Infusion site extravasation [Unknown]

NARRATIVE: CASE EVENT DATE: 20180119
